FAERS Safety Report 19827997 (Version 3)
Quarter: 2022Q1

REPORT INFORMATION
  Report Type: Spontaneous
  Country: US (occurrence: US)
  Receive Date: 20210914
  Receipt Date: 20220304
  Transmission Date: 20220423
  Serious: Yes (Other)
  Sender: FDA-Public Use
  Company Number: US-PFIZER INC-2021150539

PATIENT
  Age: 70 Year
  Sex: Female

DRUGS (4)
  1. XELJANZ [Suspect]
     Active Substance: TOFACITINIB CITRATE
     Indication: Rheumatoid arthritis
     Dosage: 5 MG, 2X/DAY
     Route: 048
     Dates: start: 2019
  2. XELJANZ [Suspect]
     Active Substance: TOFACITINIB CITRATE
     Dosage: 5 MG, 1X/DAY
     Route: 048
  3. PREDNISONE [Suspect]
     Active Substance: PREDNISONE
     Indication: Rheumatoid arthritis
     Dosage: 2 MG, ALTERNATE DAY
  4. ETODOLAC [Concomitant]
     Active Substance: ETODOLAC
     Indication: Rheumatoid arthritis
     Dosage: 400 MG, 2X/DAY

REACTIONS (4)
  - Stress fracture [Unknown]
  - Off label use [Unknown]
  - Product use issue [Unknown]
  - Off label use [Unknown]
